FAERS Safety Report 5096719-2 (Version None)
Quarter: 2006Q3

REPORT INFORMATION
  Report Type: 
  Country: None (occurrence: None)
  Receive Date: 20060831
  Receipt Date: 20060822
  Transmission Date: 20061208
  Serious: Yes (Death, Disabling, Other)
  Sender: FDA-Public Use
  Company Number: 2006JP002279

PATIENT
  Age: 35 Year
  Sex: Male
  Weight: 50 kg

DRUGS (13)
  1. PROGRAF [Suspect]
     Indication: BONE MARROW TRANSPLANT
     Dosage: SEE IMAGE
     Route: 041
     Dates: start: 20051026, end: 20051118
  2. PROGRAF [Suspect]
     Indication: BONE MARROW TRANSPLANT
     Dosage: SEE IMAGE
     Route: 041
     Dates: start: 20060105, end: 20060115
  3. PROGRAF [Suspect]
     Indication: BONE MARROW TRANSPLANT
     Dosage: SEE IMAGE
     Route: 041
     Dates: start: 20060207, end: 20060505
  4. PROGRAF [Suspect]
     Indication: BONE MARROW TRANSPLANT
     Dosage: 1 MG, BID, ORAL
     Route: 048
     Dates: start: 20051119, end: 20051226
  5. ARASENA A (VIDARABINE) INJECTION [Suspect]
     Dosage: SEE IMAGE
     Route: 041
     Dates: start: 20051220, end: 20060103
  6. ARASENA A (VIDARABINE) INJECTION [Suspect]
     Dosage: SEE IMAGE
     Route: 041
     Dates: start: 20060110, end: 20060517
  7. DENOSINE (GANCICLOVIR) INJECTION [Suspect]
     Indication: CYTOMEGALOVIRUS ANTIGEN POSITIVE
     Dosage: SEE IMAGE
     Route: 041
     Dates: start: 20060220, end: 20060305
  8. DENOSINE (GANCICLOVIR) INJECTION [Suspect]
     Indication: CYTOMEGALOVIRUS ANTIGEN POSITIVE
     Dosage: SEE IMAGE
     Route: 041
     Dates: start: 20060306, end: 20060310
  9. DENOSINE (GANCICLOVIR) INJECTION [Suspect]
     Indication: CYTOMEGALOVIRUS ANTIGEN POSITIVE
     Dosage: SEE IMAGE
     Route: 041
     Dates: start: 20060408, end: 20060421
  10. OMEPRAZOLE [Suspect]
     Indication: GASTRIC ULCER
     Dosage: SEE IMAGE
     Route: 041
     Dates: start: 20060220, end: 20060305
  11. OMEPRAZOLE [Suspect]
     Indication: GASTRIC ULCER
     Dosage: SEE IMAGE
     Route: 041
     Dates: start: 20060318, end: 20060418
  12. SOLU-MEDROL [Concomitant]
  13. PREDONINE (PREDNISOLONE SODIUM SUCCINATE) [Concomitant]

REACTIONS (14)
  - ADENOVIRAL HAEMORRHAGIC CYSTITIS [None]
  - CONVULSION [None]
  - CYTOMEGALOVIRUS VIRAEMIA [None]
  - DELIRIUM [None]
  - DEPRESSED LEVEL OF CONSCIOUSNESS [None]
  - DIARRHOEA [None]
  - GASTRIC ULCER [None]
  - GRAFT VERSUS HOST DISEASE [None]
  - HYPOGLYCAEMIA [None]
  - IMMUNOSUPPRESSION [None]
  - INSOMNIA [None]
  - PNEUMONIA [None]
  - SHOCK [None]
  - TREMOR [None]
